FAERS Safety Report 3944541 (Version 2)
Quarter: 2021Q2

REPORT INFORMATION
  Report Type: Other
  Country: FR (occurrence: FR)
  Receive Date: 20030516
  Receipt Date: 20210422
  Transmission Date: 20210717
  Serious: Yes (Other)
  Sender: FDA-Public Use
  Company Number: FR-ROCHE-337833

PATIENT
  Age: 18 Year
  Sex: Male

DRUGS (7)
  1. ROACCUTANE [Suspect]
     Active Substance: ISOTRETINOIN
     Route: 048
     Dates: start: 200110
  2. ROACCUTANE [Suspect]
     Active Substance: ISOTRETINOIN
     Route: 048
     Dates: start: 200111
  3. ROACCUTANE [Suspect]
     Active Substance: ISOTRETINOIN
     Indication: ACNE CYSTIC
     Route: 048
     Dates: start: 20010910
  4. ROACCUTANE [Suspect]
     Active Substance: ISOTRETINOIN
     Route: 048
     Dates: start: 20011010
  5. ROACCUTANE [Suspect]
     Active Substance: ISOTRETINOIN
     Route: 048
     Dates: start: 20011031
  6. ROACCUTANE [Suspect]
     Active Substance: ISOTRETINOIN
     Dosage: TILL DEC/2001
     Route: 048
     Dates: start: 20011128, end: 20020105
  7. ROACCUTANE [Suspect]
     Active Substance: ISOTRETINOIN
     Route: 048

REACTIONS (1)
  - Sacroiliitis [Unknown]

NARRATIVE: CASE EVENT DATE: 200201
